FAERS Safety Report 15252879 (Version 1)
Quarter: 2018Q3

REPORT INFORMATION
  Report Type: Spontaneous
  Country: US (occurrence: US)
  Receive Date: 20180807
  Receipt Date: 20180807
  Transmission Date: 20181010
  Serious: No
  Sender: FDA-Public Use
  Company Number: US-RADIUS HEALTH INC.-2018US001382

PATIENT
  Sex: Female

DRUGS (1)
  1. TYMLOS [Suspect]
     Active Substance: ABALOPARATIDE
     Indication: OSTEOPOROSIS POSTMENOPAUSAL
     Dosage: 80 MCG, ONCE A DAY
     Route: 058
     Dates: start: 20180703, end: 20180703

REACTIONS (6)
  - Erythema [Recovered/Resolved]
  - Feeling hot [Recovered/Resolved]
  - Back pain [Recovered/Resolved]
  - Neck pain [Recovered/Resolved]
  - Pain [Recovered/Resolved]
  - Spinal pain [Recovered/Resolved]

NARRATIVE: CASE EVENT DATE: 20180703
